FAERS Safety Report 22263077 (Version 1)
Quarter: 2023Q2

REPORT INFORMATION
  Report Type: Spontaneous
  Country: US (occurrence: US)
  Receive Date: 20230428
  Receipt Date: 20230428
  Transmission Date: 20230721
  Serious: No
  Sender: FDA-Public Use
  Company Number: US-JNJFOC-20230440627

PATIENT
  Age: 91 Year
  Sex: Male

DRUGS (1)
  1. TYLENOL 8HR [Suspect]
     Active Substance: ACETAMINOPHEN
     Indication: Myalgia
     Route: 065

REACTIONS (2)
  - Renal disorder [Unknown]
  - Incorrect dose administered [Unknown]
